FAERS Safety Report 25002963 (Version 1)
Quarter: 2025Q1

REPORT INFORMATION
  Report Type: Spontaneous
  Country: JP (occurrence: JP)
  Receive Date: 20250224
  Receipt Date: 20250224
  Transmission Date: 20250409
  Serious: Yes (Death)
  Sender: ROCHE
  Company Number: JP-CHUGAI-2025005171

PATIENT
  Age: 9 Decade
  Sex: Female

DRUGS (1)
  1. HEMLIBRA [Suspect]
     Active Substance: EMICIZUMAB-KXWH
     Indication: Acquired haemophilia
     Route: 058
     Dates: start: 20241025, end: 20241102

REACTIONS (1)
  - COVID-19 [Fatal]
